APPROVED DRUG PRODUCT: FLUDEOXYGLUCOSE F18
Active Ingredient: FLUDEOXYGLUCOSE F-18
Strength: 20-300mCi/ML
Dosage Form/Route: INJECTABLE;INTRAVENOUS
Application: A203946 | Product #001
Applicant: ESSENTIAL ISOTOPES LLC
Approved: Feb 5, 2014 | RLD: No | RS: No | Type: DISCN